FAERS Safety Report 8112273-2 (Version None)
Quarter: 2012Q1

REPORT INFORMATION
  Report Type: 
  Country: None (occurrence: None)
  Receive Date: 20120203
  Receipt Date: 20120203
  Transmission Date: 20120608
  Serious: Yes (Other)
  Sender: FDA-Public Use
  Company Number: None

PATIENT
  Age: 36 Year
  Sex: Male
  Weight: 72.121 kg

DRUGS (1)
  1. ELIDEL [Suspect]
     Indication: ECZEMA
     Dosage: 1 APPLICATOIN
     Route: 061
     Dates: start: 20110101, end: 20120113

REACTIONS (2)
  - HERPES ZOSTER OPHTHALMIC [None]
  - PARAESTHESIA [None]
